FAERS Safety Report 4854596-6 (Version None)
Quarter: 2005Q4

REPORT INFORMATION
  Report Type: 
  Country: None (occurrence: None)
  Receive Date: 20051213
  Receipt Date: 20051130
  Transmission Date: 20060501
  Serious: Yes (Other)
  Sender: FDA-Public Use
  Company Number: HQWYE824505DEC05

PATIENT
  Age: 43 Year
  Sex: Male

DRUGS (7)
  1. RAPAMUNE [Suspect]
     Indication: PROPHYLAXIS AGAINST TRANSPLANT REJECTION
     Dosage: 2 MG 1X PER 1 DAY
     Route: 048
     Dates: start: 20041210
  2. CYCLOSPORINE [Concomitant]
  3. PREDNISONE 50MG TAB [Concomitant]
  4. ENALAPRIL [Concomitant]
  5. NIFEDIPINE [Concomitant]
  6. PROPRANOLOL HYDROCHLORIDE [Concomitant]
  7. SIMVASTATIN [Concomitant]

REACTIONS (1)
  - KIDNEY TRANSPLANT REJECTION [None]
